FAERS Safety Report 17303531 (Version 2)
Quarter: 2021Q2

REPORT INFORMATION
  Report Type: Spontaneous
  Country: US (occurrence: US)
  Receive Date: 20200122
  Receipt Date: 20210507
  Transmission Date: 20210716
  Serious: No
  Sender: FDA-Public Use
  Company Number: NVSC2020US011158

PATIENT

DRUGS (1)
  1. CEFTRIAXONE. [Suspect]
     Active Substance: CEFTRIAXONE
     Indication: GONORRHOEA
     Dosage: 250 MG
     Route: 030
     Dates: start: 20200110

REACTIONS (2)
  - Expired product administered [Unknown]
  - Infection [Unknown]

NARRATIVE: CASE EVENT DATE: 20200110
